FAERS Safety Report 23565719 (Version 1)
Quarter: 2024Q1

REPORT INFORMATION
  Report Type: Spontaneous
  Country: PL (occurrence: PL)
  Receive Date: 20240226
  Receipt Date: 20240226
  Transmission Date: 20240410
  Serious: Yes (Hospitalization)
  Sender: FDA-Public Use
  Company Number: PL-GERMAN-LIT/POL/24/0003053

PATIENT
  Age: 41 Year
  Sex: Male

DRUGS (8)
  1. PREGABALIN [Suspect]
     Active Substance: PREGABALIN
     Indication: Visceral pain
     Dosage: 2 X 300 MG
  2. FENTANYL [Suspect]
     Active Substance: FENTANYL\FENTANYL CITRATE
     Indication: Visceral pain
     Dosage: 100 UG/H
     Route: 062
  3. FENTANYL [Suspect]
     Active Substance: FENTANYL\FENTANYL CITRATE
     Indication: Pain prophylaxis
     Route: 045
  4. FENTANYL [Suspect]
     Active Substance: FENTANYL\FENTANYL CITRATE
     Dosage: 50 UG/H
     Route: 062
  5. ACETAMINOPHEN [Suspect]
     Active Substance: ACETAMINOPHEN
     Indication: Visceral pain
     Dosage: 3 X 1 G
  6. SERTRALINE [Suspect]
     Active Substance: SERTRALINE HYDROCHLORIDE
     Indication: Affective disorder
     Dosage: 50 MG IN THE MORNING
  7. MIANSERIN [Suspect]
     Active Substance: MIANSERIN
     Indication: Affective disorder
     Dosage: 30 MG AT NIGH
  8. BUTYLSCOPOLAMINE BROMIDE [Suspect]
     Active Substance: BUTYLSCOPOLAMINE BROMIDE
     Indication: Abdominal pain
     Dosage: 3 X 10 MG
     Route: 048

REACTIONS (3)
  - Hyperaesthesia [Recovered/Resolved]
  - Medication error [Unknown]
  - Drug interaction [Unknown]
